FAERS Safety Report 11515303 (Version 6)
Quarter: 2015Q4

REPORT INFORMATION
  Report Type: Spontaneous
  Country: US (occurrence: US)
  Receive Date: 20150916
  Receipt Date: 20151106
  Transmission Date: 20160304
  Serious: Yes (Hospitalization)
  Sender: FDA-Public Use
  Company Number: US-NPS_PHARMACEUTICALS-002531

PATIENT
  Age: 45 Year
  Sex: Female

DRUGS (36)
  1. HEPARIN [Concomitant]
     Active Substance: HEPARIN SODIUM
  2. PANTOPRAZOLE [Concomitant]
     Active Substance: PANTOPRAZOLE SODIUM
     Route: 048
  3. ALBUTEROL. [Concomitant]
     Active Substance: ALBUTEROL
     Indication: DYSPNOEA
     Dosage: 2 DF, QID [PRN]
     Route: 055
  4. LASIX [Concomitant]
     Active Substance: FUROSEMIDE
     Route: 048
  5. DILAUDID [Suspect]
     Active Substance: HYDROMORPHONE HYDROCHLORIDE
     Dosage: DF (DECREASED PCA PUMP DOSE)
     Route: 058
     Dates: start: 201509
  6. MIDODRINE [Concomitant]
     Active Substance: MIDODRINE
     Route: 048
  7. FIORICET [Concomitant]
     Active Substance: ACETAMINOPHEN\BUTALBITAL\CAFFEINE
     Indication: MIGRAINE
     Dosage: [PRN]
     Route: 048
  8. ERGOCALCIFEROL. [Concomitant]
     Active Substance: ERGOCALCIFEROL
     Indication: VITAMIN D DEFICIENCY
     Route: 048
  9. TPN [Concomitant]
     Active Substance: AMINO ACIDS\DEXTROSE\ELECTROLYTES NOS\SOYBEAN OIL
     Indication: MEDICAL DIET
     Dosage: DF
  10. GATTEX [Suspect]
     Active Substance: TEDUGLUTIDE\WATER
     Indication: SHORT-BOWEL SYNDROME
     Route: 058
     Dates: start: 20150905
  11. MULTIVITAMIN [Concomitant]
     Active Substance: VITAMINS
     Route: 048
  12. PANCRELIPASE. [Concomitant]
     Active Substance: PANCRELIPASE
     Route: 048
  13. TAMOXIFEN [Concomitant]
     Active Substance: TAMOXIFEN
     Route: 048
  14. FLUTICASONE FUROATE [Concomitant]
     Active Substance: FLUTICASONE FUROATE
     Indication: MULTIPLE ALLERGIES
     Dosage: 1 SPRAY QD [PRN]
     Route: 045
  15. REGLAN [Concomitant]
     Active Substance: METOCLOPRAMIDE HYDROCHLORIDE
     Route: 048
  16. NEURONTIN [Concomitant]
     Active Substance: GABAPENTIN
     Route: 048
  17. CALCITRIOL. [Concomitant]
     Active Substance: CALCITRIOL
     Route: 048
  18. PREDNISONE. [Concomitant]
     Active Substance: PREDNISONE
     Route: 048
  19. CALCIUM CITRATE VITAMIN D [Concomitant]
     Route: 048
  20. MEPHYTON [Concomitant]
     Active Substance: PHYTONADIONE
     Route: 048
  21. FLORINEF ACETATE [Concomitant]
     Active Substance: FLUDROCORTISONE ACETATE
     Route: 048
  22. SUCRALFATE. [Concomitant]
     Active Substance: SUCRALFATE
     Dosage: 1 G, QID [PRN]
     Route: 048
  23. NYSTATIN. [Concomitant]
     Active Substance: NYSTATIN
     Indication: STOMA SITE REACTION
     Dosage: [PRN]
     Route: 061
  24. PROZAC [Concomitant]
     Active Substance: FLUOXETINE HYDROCHLORIDE
     Dosage: 20 MG/ 5 ML, AS DIRECTED
  25. FOLIC ACID. [Concomitant]
     Active Substance: FOLIC ACID
     Route: 048
  26. GATTEX [Suspect]
     Active Substance: TEDUGLUTIDE\WATER
     Dosage: DF
     Route: 058
     Dates: start: 20150820, end: 20150901
  27. LUPRON DEPOT [Concomitant]
     Active Substance: LEUPROLIDE ACETATE
     Route: 030
  28. SIMETHICONE (DIMETHICONE) [Concomitant]
     Active Substance: DIMETHICONE
     Dosage: 40 MG TID FOR 30 DAYS
     Route: 048
  29. GATTEX [Suspect]
     Active Substance: TEDUGLUTIDE\WATER
     Dosage: [DF] EVERY OTHER DAY
     Route: 058
     Dates: start: 2015, end: 2015
  30. ALBUTEROL. [Concomitant]
     Active Substance: ALBUTEROL
     Indication: WHEEZING
     Dosage: 2 DF, QID [PRN]
     Route: 055
  31. LEVOTHYROXINE. [Concomitant]
     Active Substance: LEVOTHYROXINE
     Dosage: 200 MCG TWICE A WEEK; 300 MCG ONCE A WEEK
     Route: 058
  32. DILAUDID [Suspect]
     Active Substance: HYDROMORPHONE HYDROCHLORIDE
     Indication: ARTHRALGIA
     Dosage: DF
     Route: 048
     Dates: start: 2015
  33. DILAUDID [Suspect]
     Active Substance: HYDROMORPHONE HYDROCHLORIDE
     Dosage: 1 MG/HOUR WITH 0.5 MG DOSING ON PCA PUMP
     Route: 058
     Dates: start: 20150901, end: 2015
  34. VITAMIN B12 [Concomitant]
     Active Substance: CYANOCOBALAMIN
     Dosage: 1000 MCG, QMONTH (9TH OF EACH MONTH)
     Route: 030
  35. ALPRAZOLAM. [Concomitant]
     Active Substance: ALPRAZOLAM
     Indication: ANXIETY
     Route: 048
  36. FONDAPARINUX [Concomitant]
     Active Substance: FONDAPARINUX
     Route: 058

REACTIONS (13)
  - Overdose [Recovering/Resolving]
  - Mental status changes [Recovered/Resolved]
  - Fluid imbalance [Unknown]
  - Arthralgia [Not Recovered/Not Resolved]
  - Intestinal obstruction [Unknown]
  - Blood pressure orthostatic [Unknown]
  - Off label use [Recovered/Resolved]
  - Gastrointestinal stoma output decreased [Unknown]
  - Insulin-like growth factor increased [Unknown]
  - Hypokalaemia [Recovered/Resolved]
  - Renal impairment [None]
  - Abdominal pain [Recovering/Resolving]
  - Diarrhoea [Not Recovered/Not Resolved]

NARRATIVE: CASE EVENT DATE: 2015
